FAERS Safety Report 4357510-5 (Version None)
Quarter: 2004Q2

REPORT INFORMATION
  Report Type: 
  Country: None (occurrence: None)
  Receive Date: 20040506
  Receipt Date: 20040422
  Transmission Date: 20050107
  Serious: No
  Sender: FDA-Public Use
  Company Number: 2004209496US

PATIENT
  Age: 54 Year
  Sex: Female

DRUGS (4)
  1. BEXTRA [Suspect]
     Indication: MIGRAINE
     Dosage: 20 MG, QD, ORAL
     Route: 048
     Dates: start: 20040402, end: 20040403
  2. TOPAMAX [Concomitant]
  3. BECONASE (BECLOMETASONE DIPROPIONATE) [Concomitant]
  4. HORMONE PATCH [Concomitant]

REACTIONS (2)
  - BLOOD BLISTER [None]
  - STEVENS-JOHNSON SYNDROME [None]
